FAERS Safety Report 12509703 (Version 2)
Quarter: 2016Q3

REPORT INFORMATION
  Report Type: Spontaneous
  Country: TW (occurrence: TW)
  Receive Date: 20160629
  Receipt Date: 20160719
  Transmission Date: 20161109
  Serious: Yes (Other)
  Sender: FDA-Public Use
  Company Number: TW-ACTAVIS-2016-13884

PATIENT
  Age: 50 Year
  Sex: Female

DRUGS (3)
  1. DOCETAXEL (UNKNOWN) [Suspect]
     Active Substance: DOCETAXEL
     Indication: NASOPHARYNGEAL CANCER RECURRENT
     Dosage: 60 MG/M2, DAILY - SINGLE 1-HR INFUSION
     Route: 065
  2. CISPLATIN (UNKNOWN) [Suspect]
     Active Substance: CISPLATIN
     Indication: NASOPHARYNGEAL CANCER RECURRENT
     Dosage: 80 MG/M2, DAILY - SINGLE 6-HR INFUSION
     Route: 065
  3. FLUOROURACIL. [Suspect]
     Active Substance: FLUOROURACIL
     Indication: NASOPHARYNGEAL CANCER RECURRENT
     Dosage: 800 MG/M2, UNK - DAY 1 TO 4 - CONTINUOUS PUMP
     Route: 065

REACTIONS (3)
  - Febrile neutropenia [Recovering/Resolving]
  - Hyponatraemia [Recovering/Resolving]
  - Osmotic demyelination syndrome [Recovering/Resolving]

NARRATIVE: CASE EVENT DATE: 20140605
